FAERS Safety Report 9194100 (Version 2)
Quarter: 2013Q2

REPORT INFORMATION
  Report Type: Spontaneous
  Country: BR (occurrence: BR)
  Receive Date: 20130327
  Receipt Date: 20130417
  Transmission Date: 20140414
  Serious: Yes (Death, Other)
  Sender: FDA-Public Use
  Company Number: BR-ELI_LILLY_AND_COMPANY-BR201303006693

PATIENT
  Age: 85 Year
  Sex: Female
  Weight: 42 kg

DRUGS (10)
  1. FORTEO [Suspect]
     Indication: OSTEOPOROSIS
     Dosage: 20 UG, QD
     Route: 058
     Dates: start: 201202
  2. RAMIPRIL [Concomitant]
     Indication: CARDIAC DISORDER
     Dosage: UNK, UNKNOWN
     Route: 065
     Dates: start: 200707
  3. DIGOXINE [Concomitant]
     Dosage: 0.5 DF, QD
     Route: 065
     Dates: start: 200707
  4. OMEPRAZOL [Concomitant]
     Dosage: 20 MG, QD
     Route: 065
  5. TAPAZOL [Concomitant]
     Indication: HYPERTHYROIDISM
     Dosage: 5 MG, EACH MORNING
     Route: 065
  6. LOVASTATINA [Concomitant]
     Indication: BLOOD CHOLESTEROL
     Dosage: 200 MG, QD
     Route: 065
  7. DONEPEZIL HYDROCHLORIDE [Concomitant]
     Indication: DEMENTIA ALZHEIMER^S TYPE
     Dosage: 10 MG, EACH EVENING
     Route: 065
  8. HIDROCLOROTIAZIDA [Concomitant]
     Dosage: UNK, UNKNOWN
     Route: 065
  9. ASPIRINA [Concomitant]
     Dosage: UNK, UNKNOWN
     Route: 065
  10. CALCITRIOL [Concomitant]
     Dosage: UNK, UNKNOWN
     Route: 065

REACTIONS (8)
  - Myocardial infarction [Fatal]
  - Sudden cardiac death [Fatal]
  - Cardiac failure congestive [Fatal]
  - Pulse absent [Recovered/Resolved]
  - Blood pressure fluctuation [Recovered/Resolved]
  - Blood pressure decreased [Unknown]
  - Eye movement disorder [Recovered/Resolved]
  - Cold sweat [Recovered/Resolved]
